FAERS Safety Report 25354922 (Version 1)
Quarter: 2025Q2

REPORT INFORMATION
  Report Type: Spontaneous
  Country: DE (occurrence: DE)
  Receive Date: 20250524
  Receipt Date: 20250524
  Transmission Date: 20250717
  Serious: Yes (Other)
  Sender: ACCORD
  Company Number: DE-Accord-485396

PATIENT
  Sex: Male

DRUGS (2)
  1. PACLITAXEL [Suspect]
     Active Substance: PACLITAXEL
     Indication: Oropharyngeal squamous cell carcinoma
     Dates: start: 2021
  2. CETUXIMAB [Suspect]
     Active Substance: CETUXIMAB
     Indication: Oropharyngeal squamous cell carcinoma
     Dosage: THERAPY WAS FIRST REDUCED IN DOSE
     Dates: start: 2021

REACTIONS (2)
  - Haematotoxicity [Unknown]
  - Off label use [Unknown]
